FAERS Safety Report 7296223-7 (Version None)
Quarter: 2011Q1

REPORT INFORMATION
  Report Type: 
  Country: None (occurrence: None)
  Receive Date: 20110211
  Receipt Date: 20110211
  Transmission Date: 20110831
  Serious: Yes (Hospitalization)
  Sender: FDA-Public Use
  Company Number: None

PATIENT
  Sex: Male
  Weight: 85 kg

DRUGS (4)
  1. CAMPTOSAR [Suspect]
     Dosage: 752 MG
     Dates: end: 20110126
  2. FLUOROURACIL [Suspect]
     Dosage: 11704 MG
     Dates: end: 20110128
  3. BEVACIZUMAB (RHUMAB VEGF) [Suspect]
     Dosage: 846 MG
     Dates: end: 20110126
  4. LEUCOVORIN CALCIUM [Suspect]
     Dosage: 1672 MG
     Dates: end: 20110126

REACTIONS (1)
  - PULMONARY EMBOLISM [None]
